FAERS Safety Report 5085536-5 (Version None)
Quarter: 2006Q3

REPORT INFORMATION
  Report Type: 
  Country: None (occurrence: None)
  Receive Date: 20060822
  Receipt Date: 20060816
  Transmission Date: 20061208
  Serious: Yes (Hospitalization)
  Sender: FDA-Public Use
  Company Number: CZ-JNJFOC-20060804021

PATIENT
  Sex: Female

DRUGS (5)
  1. REMICADE [Suspect]
     Indication: RHEUMATOID ARTHRITIS
     Route: 042
  2. METHOTREXATE [Concomitant]
     Route: 065
  3. MEDROL [Concomitant]
     Route: 065
  4. ACIDUM FOLICUM [Concomitant]
     Route: 065
  5. IBALGIN [Concomitant]
     Route: 065

REACTIONS (1)
  - JOINT ARTHROPLASTY [None]
